FAERS Safety Report 13383744 (Version 1)
Quarter: 2017Q1

REPORT INFORMATION
  Report Type: Spontaneous
  Country: US (occurrence: US)
  Receive Date: 20170329
  Receipt Date: 20170329
  Transmission Date: 20170429
  Serious: Yes (Other)
  Sender: FDA-Public Use
  Company Number: US-ELI_LILLY_AND_COMPANY-US201703007196

PATIENT
  Age: 67 Year
  Sex: Male

DRUGS (3)
  1. ASPIRIN                            /00002701/ [Concomitant]
     Active Substance: ASPIRIN
  2. HUMALOG [Suspect]
     Active Substance: INSULIN LISPRO
     Indication: TYPE 2 DIABETES MELLITUS
     Dosage: UNK, UNKNOWN
     Route: 065
     Dates: start: 2011
  3. HUMALOG [Suspect]
     Active Substance: INSULIN LISPRO
     Indication: TYPE 2 DIABETES MELLITUS
     Dosage: UNK, UNKNOWN
     Route: 065
     Dates: start: 2011

REACTIONS (5)
  - Blood pressure abnormal [Unknown]
  - Gait disturbance [Unknown]
  - Parkinson^s disease [Unknown]
  - Viral infection [Unknown]
  - Fall [Unknown]

NARRATIVE: CASE EVENT DATE: 201403
